FAERS Safety Report 9196969 (Version 1)
Quarter: 2013Q1

REPORT INFORMATION
  Report Type: Spontaneous
  Country: US (occurrence: None)
  Receive Date: 20120709
  Receipt Date: 20120709
  Transmission Date: 20140127
  Serious: No
  Sender: FDA-Public Use
  Company Number: 2012HGS-003608

PATIENT
  Age: 51 Year
  Sex: Female
  Weight: 53.98 kg

DRUGS (11)
  1. BENLYSTA [Suspect]
     Indication: SYSTEMIC LUPUS ERYTHEMATOSUS
     Dosage: 1 IN 28 D, INTRAVENOUS DRIP
     Dates: start: 20120222
  2. NERONTIN (GABAPENTIN) (GABAPENTIN) [Concomitant]
  3. PREDNISONE (PREDNISONE ) (PREDNISONE) [Concomitant]
  4. KLONOPIN [Concomitant]
  5. PLAQUENIL (HYDROXYCHLOROQUINE SULFATE) (HYDROXYCHLOROQUINE SULFATE) [Concomitant]
  6. PRILOSEC (OMEPRAZOLE) (OMEPRAZOLE) [Concomitant]
  7. EVOXAC (CEVIMELINE HYDROCHLORIDE) (CEVIMELINE HYDROCHLORIDE) [Concomitant]
  8. METHOTREXATE (METHOTREXATE) (METHOTREXATE) [Concomitant]
  9. FOLIC ACID (FOLIC ACID) (FOLIC ACID) [Concomitant]
  10. SAVELLA (MILNACIPRAN HYDROCHLORIDE) (MILNACIPRAN HYDROCHLORIDE) [Concomitant]
  11. PEPTO-BISMOL (BISMUTH SUBSALICYLATE) (BISMUTH SUBSALICYLATE( [Concomitant]

REACTIONS (5)
  - Confusional state [None]
  - Memory impairment [None]
  - Flatulence [None]
  - Rhinorrhoea [None]
  - Diarrhoea [None]
